FAERS Safety Report 9882611 (Version 2)
Quarter: 2014Q3

REPORT INFORMATION
  Report Type: Spontaneous
  Country: US (occurrence: US)
  Receive Date: 20140207
  Receipt Date: 20140729
  Transmission Date: 20150326
  Serious: Yes (Hospitalization, Other)
  Sender: FDA-Public Use
  Company Number: US-009507513-1402USA003491

PATIENT
  Sex: Female
  Weight: 74.83 kg

DRUGS (2)
  1. NUVARING [Suspect]
     Active Substance: ETHINYL ESTRADIOL\ETONOGESTREL
     Indication: CONTRACEPTION
     Dosage: UNK
     Route: 067
     Dates: start: 20091207
  2. NUVARING [Suspect]
     Active Substance: ETHINYL ESTRADIOL\ETONOGESTREL
     Dosage: UNK
     Route: 067
     Dates: start: 20101107

REACTIONS (8)
  - Pulmonary embolism [Unknown]
  - Asthenia [Unknown]
  - Fatigue [Unknown]
  - Normochromic normocytic anaemia [Unknown]
  - Dyspnoea [Unknown]
  - Constipation [Unknown]
  - Chest pain [Unknown]
  - Blood iron decreased [Unknown]

NARRATIVE: CASE EVENT DATE: 201106
